FAERS Safety Report 7481773-0 (Version None)
Quarter: 2011Q2

REPORT INFORMATION
  Report Type: 
  Country: None (occurrence: None)
  Receive Date: 20110506
  Receipt Date: 20110420
  Transmission Date: 20111010
  Serious: Yes (Hospitalization)
  Sender: FDA-Public Use
  Company Number: 777715

PATIENT
  Age: 20 Month
  Sex: Female
  Weight: 9.5255 kg

DRUGS (1)
  1. CALDESENE [Suspect]
     Dates: start: 20110418, end: 20110418

REACTIONS (3)
  - ACCIDENTAL EXPOSURE [None]
  - COUGH [None]
  - DYSPNOEA [None]
